FAERS Safety Report 5812581-1 (Version None)
Quarter: 2008Q3

REPORT INFORMATION
  Report Type: 
  Country: None (occurrence: None)
  Receive Date: 20080711
  Receipt Date: 20080701
  Transmission Date: 20090109
  Serious: Yes (Other)
  Sender: FDA-Public Use
  Company Number: 2008AL003977

PATIENT
  Age: 25 Year
  Sex: Female

DRUGS (1)
  1. DIGOXIN [Suspect]
     Indication: TACHYCARDIA
     Dosage: 0.125MG DAILY PO
     Route: 048
     Dates: start: 20070401, end: 20080401

REACTIONS (7)
  - DIZZINESS [None]
  - DRUG EFFECT DECREASED [None]
  - HEADACHE [None]
  - HEART RATE INCREASED [None]
  - LOSS OF CONSCIOUSNESS [None]
  - MIGRAINE [None]
  - VOMITING [None]
